FAERS Safety Report 8334863-4 (Version None)
Quarter: 2012Q2

REPORT INFORMATION
  Report Type: 
  Country: None (occurrence: None)
  Receive Date: 20120503
  Receipt Date: 20120424
  Transmission Date: 20120825
  Serious: Yes (Other)
  Sender: FDA-Public Use
  Company Number: GB-ABBOTT-12P-167-0929434-00

PATIENT
  Age: 50 Year
  Sex: Female

DRUGS (5)
  1. CLOZARIL [Suspect]
     Route: 048
  2. FLUOXETINE [Concomitant]
     Indication: PRODUCT USED FOR UNKNOWN INDICATION
  3. CLOZARIL [Suspect]
     Indication: SCHIZOPHRENIA
     Route: 048
     Dates: start: 20111208
  4. VALPROATE SODIUM [Suspect]
     Indication: GRAND MAL CONVULSION
  5. VALPROATE SODIUM [Suspect]

REACTIONS (6)
  - ATAXIA [None]
  - MYOCLONUS [None]
  - GRAND MAL CONVULSION [None]
  - DYSKINESIA [None]
  - NEUTROPHIL COUNT DECREASED [None]
  - DIZZINESS [None]
